FAERS Safety Report 6443462-0 (Version None)
Quarter: 2009Q4

REPORT INFORMATION
  Report Type: 
  Country: None (occurrence: None)
  Receive Date: 20091117
  Receipt Date: 20091106
  Transmission Date: 20100525
  Serious: Yes (Hospitalization, Other)
  Sender: FDA-Public Use
  Company Number: JP-PFIZER INC-2009253748

PATIENT
  Age: 67 Year
  Sex: Male

DRUGS (4)
  1. SALAZOPYRIN [Suspect]
     Dosage: UNK
     Route: 048
     Dates: end: 20090807
  2. KINEDAK [Concomitant]
     Dosage: UNK
     Route: 048
  3. OLMETEC [Concomitant]
     Dosage: UNK
     Route: 048
  4. LASIX [Concomitant]
     Dosage: UNK
     Route: 048

REACTIONS (2)
  - ECZEMA [None]
  - PANCYTOPENIA [None]
